FAERS Safety Report 5282866-9 (Version None)
Quarter: 2007Q1

REPORT INFORMATION
  Report Type: 
  Country: None (occurrence: None)
  Receive Date: 20070329
  Receipt Date: 20070329
  Transmission Date: 20070707
  Serious: Yes (Hospitalization, Disabling, Other)
  Sender: FDA-Public Use
  Company Number: None

PATIENT
  Age: 31 Year
  Sex: Male

DRUGS (1)
  1. EFALIZUMAB 1 MILLIGRAM/KILOGRA GENENTECH [Suspect]
     Indication: PSORIASIS
     Dosage: 1 MILLIGRAM/KILOGRAM ONCE WEEKLY SQ
     Route: 058

REACTIONS (2)
  - DEMYELINATING POLYNEUROPATHY [None]
  - GUILLAIN-BARRE SYNDROME [None]
